APPROVED DRUG PRODUCT: TIGLUTIK KIT
Active Ingredient: RILUZOLE
Strength: 50MG/10ML
Dosage Form/Route: SUSPENSION;ORAL
Application: N209080 | Product #001 | TE Code: AB
Applicant: ITALFARMACO SA
Approved: Sep 5, 2018 | RLD: Yes | RS: Yes | Type: RX

PATENTS:
Patent 8765150 | Expires: Mar 12, 2029